FAERS Safety Report 6498835-7 (Version None)
Quarter: 2009Q4

REPORT INFORMATION
  Report Type: 
  Country: None (occurrence: None)
  Receive Date: 20091127
  Receipt Date: 20081027
  Transmission Date: 20100525
  Serious: Yes (Other)
  Sender: FDA-Public Use
  Company Number: WAES 0810USA04875

PATIENT
  Age: 64 Year
  Sex: Female

DRUGS (6)
  1. FOSAMAX [Suspect]
     Indication: OSTEOPOROSIS
     Dosage: 70 MG/WKY/PO
     Route: 048
     Dates: start: 20050401, end: 20080103
  2. ADVAIR DISKUS 100/50 [Concomitant]
  3. LIPITOR [Concomitant]
  4. NITROGLYCERIN [Concomitant]
  5. GLYBURIDE [Concomitant]
  6. METFORMIN HCL [Concomitant]

REACTIONS (18)
  - ABDOMINAL DISTENSION [None]
  - ARTHRITIS [None]
  - BLOOD TRIGLYCERIDES INCREASED [None]
  - BONE DISORDER [None]
  - BRONCHITIS [None]
  - DIPLOPIA [None]
  - DIZZINESS [None]
  - FRACTURE [None]
  - GASTROOESOPHAGEAL REFLUX DISEASE [None]
  - HEADACHE [None]
  - IMPAIRED HEALING [None]
  - INSOMNIA [None]
  - ORAL INFECTION [None]
  - OSTEONECROSIS [None]
  - OTITIS MEDIA [None]
  - PHARYNGITIS [None]
  - RESORPTION BONE INCREASED [None]
  - TOOTH DISORDER [None]
